FAERS Safety Report 7218962-6 (Version None)
Quarter: 2011Q1

REPORT INFORMATION
  Report Type: 
  Country: None (occurrence: None)
  Receive Date: 20110111
  Receipt Date: 20101229
  Transmission Date: 20110831
  Serious: Yes (Hospitalization, Other)
  Sender: FDA-Public Use
  Company Number: US-BIOGENIDEC-2011BI000138

PATIENT
  Age: 49 Year
  Sex: Female
  Weight: 88 kg

DRUGS (9)
  1. TYSABRI [Suspect]
     Indication: MULTIPLE SCLEROSIS
     Route: 042
     Dates: start: 20090105, end: 20090409
  2. CALTRATE [Concomitant]
     Route: 048
  3. TYLENOL [Concomitant]
     Route: 048
  4. VITAMIN D [Concomitant]
     Indication: DEEP VEIN THROMBOSIS
     Route: 048
  5. DARVOCET [Concomitant]
     Indication: PAIN
     Route: 048
     Dates: end: 20100505
  6. DARVOCET [Concomitant]
     Route: 048
     Dates: start: 20100505
  7. AMYPRA [Concomitant]
     Indication: MULTIPLE SCLEROSIS
  8. AVONEX [Concomitant]
     Route: 030
  9. VITAMIN D [Concomitant]
     Indication: PULMONARY EMBOLISM
     Route: 048

REACTIONS (1)
  - BREAST CANCER [None]
